FAERS Safety Report 17368898 (Version 2)
Quarter: 2020Q1

REPORT INFORMATION
  Report Type: Spontaneous
  Country: US (occurrence: US)
  Receive Date: 20200204
  Receipt Date: 20200208
  Transmission Date: 20200409
  Serious: No
  Sender: FDA-Public Use
  Company Number: US-TEVA-2020-US-1178376

PATIENT
  Sex: Female
  Weight: 47.67 kg

DRUGS (1)
  1. PROAIR HFA [Suspect]
     Active Substance: ALBUTEROL SULFATE
     Indication: ASTHMA
     Dosage: DOSE OF 1 TO 2 PUFFS EVERY 6 HOURS
     Route: 065

REACTIONS (7)
  - Dyspnoea [Unknown]
  - Blood parathyroid hormone increased [Unknown]
  - Drug ineffective [Unknown]
  - Inappropriate schedule of product administration [Unknown]
  - Blood calcium increased [Unknown]
  - Vitamin D decreased [Unknown]
  - Fatigue [Unknown]
